FAERS Safety Report 5782898-8 (Version None)
Quarter: 2008Q2

REPORT INFORMATION
  Report Type: 
  Country: None (occurrence: None)
  Receive Date: 20080620
  Receipt Date: 20080620
  Transmission Date: 20081010
  Serious: Yes (Other)
  Sender: FDA-Public Use
  Company Number: None

PATIENT

DRUGS (1)
  1. FENTANYL [Suspect]
     Indication: PAIN
     Dosage: SKIN Q 3 DAY 75MGS
     Dates: start: 20060101, end: 20080601

REACTIONS (1)
  - DERMATITIS CONTACT [None]
